FAERS Safety Report 4731656-1 (Version None)
Quarter: 2005Q3

REPORT INFORMATION
  Report Type: 
  Country: None (occurrence: None)
  Receive Date: 20050719
  Receipt Date: 20050214
  Transmission Date: 20060218
  Serious: Yes (Hospitalization, Other)
  Sender: FDA-Public Use
  Company Number: 2005BI003686

PATIENT
  Age: 67 Year
  Sex: Female

DRUGS (6)
  1. AVONEX [Suspect]
     Indication: MULTIPLE SCLEROSIS
     Dosage: 30 UG;QW;IM
     Route: 030
     Dates: start: 20000101, end: 20030101
  2. AVONEX [Suspect]
     Dosage: 30 UG;QW;IM
     Route: 030
     Dates: start: 20030101
  3. LISINOPRIL [Concomitant]
  4. HYDROCHLOROTHIAZIDE [Concomitant]
  5. ASCORBIC ACID [Concomitant]
  6. CALCIUM D [Concomitant]

REACTIONS (5)
  - BALANCE DISORDER [None]
  - BLOOD CHOLESTEROL INCREASED [None]
  - CONVULSION [None]
  - GASTROINTESTINAL ULCER [None]
  - MULTIPLE SCLEROSIS RELAPSE [None]
